FAERS Safety Report 7403781-8 (Version None)
Quarter: 2011Q2

REPORT INFORMATION
  Report Type: 
  Country: None (occurrence: None)
  Receive Date: 20110408
  Receipt Date: 20110315
  Transmission Date: 20111010
  Serious: No
  Sender: FDA-Public Use
  Company Number: US-B.I. PHARMACEUTICALS,INC./RIDGEFIELD-2011-BP-08311BP

PATIENT
  Sex: Male

DRUGS (9)
  1. NIASPAN [Concomitant]
     Indication: BLOOD CHOLESTEROL INCREASED
  2. PRADAXA [Suspect]
     Indication: ATRIAL FIBRILLATION
     Dosage: 150 MG
     Route: 048
     Dates: start: 20110101, end: 20110101
  3. CARVEDILOL [Concomitant]
     Indication: HYPERTENSION
  4. OMEPRAZOLE [Concomitant]
     Indication: ULCER HAEMORRHAGE
  5. ASPIRIN [Concomitant]
     Indication: PROPHYLAXIS
  6. LISINOPRIL [Concomitant]
     Indication: HYPERTENSION
  7. PRADAXA [Suspect]
     Indication: ANTICOAGULANT THERAPY
     Dosage: 300 MG
     Route: 048
     Dates: start: 20110101, end: 20110101
  8. LESCOL [Concomitant]
     Indication: BLOOD CHOLESTEROL INCREASED
  9. OMEPRAZOLE [Concomitant]
     Indication: HELICOBACTER INFECTION

REACTIONS (3)
  - ASTHENIA [None]
  - RECTAL HAEMORRHAGE [None]
  - CONTUSION [None]
